FAERS Safety Report 24653569 (Version 4)
Quarter: 2025Q3

REPORT INFORMATION
  Report Type: Spontaneous
  Country: US (occurrence: US)
  Receive Date: 20241122
  Receipt Date: 20250922
  Transmission Date: 20251021
  Serious: No
  Sender: TRAVERE THERAPEUTICS
  Company Number: US-TRAVERE-2024TVT01178

PATIENT
  Age: 35 Year
  Sex: Female

DRUGS (3)
  1. FILSPARI [Suspect]
     Active Substance: SPARSENTAN
     Indication: IgA nephropathy
     Route: 048
     Dates: start: 20250123
  2. FILSPARI [Suspect]
     Active Substance: SPARSENTAN
     Indication: Haematuria
  3. TARPEYO [Suspect]
     Active Substance: BUDESONIDE
     Indication: Product used for unknown indication

REACTIONS (9)
  - Headache [Unknown]
  - Nausea [Unknown]
  - Vomiting [Unknown]
  - Chromaturia [Unknown]
  - Anaemia [Unknown]
  - Fatigue [Unknown]
  - Vomiting [Unknown]
  - Alopecia [Unknown]
  - Menstrual disorder [Unknown]
